FAERS Safety Report 13156298 (Version 2)
Quarter: 2017Q1

REPORT INFORMATION
  Report Type: Report from Study
  Country: US (occurrence: US)
  Receive Date: 20170126
  Receipt Date: 20170309
  Transmission Date: 20170428
  Serious: Yes (Other)
  Sender: FDA-Public Use
  Company Number: US-SAOL THERAPEUTICS-2017SAO00152

PATIENT
  Age: 47 Year

DRUGS (16)
  1. BACLOFEN. [Suspect]
     Active Substance: BACLOFEN
     Dosage: 272.05 ?G, \DAY
     Dates: start: 20161110
  2. BUPIVACAINE. [Suspect]
     Active Substance: BUPIVACAINE
     Dosage: 11.260 MG, \DAY
     Route: 037
     Dates: start: 20160506
  3. CLONIDINE. [Suspect]
     Active Substance: CLONIDINE
     Dosage: 179.88 ?G, \DAY
     Dates: start: 20161110
  4. BACLOFEN. [Suspect]
     Active Substance: BACLOFEN
     Dosage: 234.73 ?G, \DAY
     Dates: start: 20160506
  5. CLONIDINE. [Suspect]
     Active Substance: CLONIDINE
     Dosage: 234.73 ?G, \DAY
     Dates: start: 20160506
  6. DILAUDID [Suspect]
     Active Substance: HYDROMORPHONE HYDROCHLORIDE
     Dosage: 0.750 MG, \DAY
     Dates: start: 20160506
  7. BACLOFEN. [Suspect]
     Active Substance: BACLOFEN
     Dosage: 150.14 ?G, \DAY
     Route: 037
     Dates: start: 20160506
  8. BUPIVACAINE. [Suspect]
     Active Substance: BUPIVACAINE
     Dosage: 17.605 MG, \DAY
     Route: 037
     Dates: start: 20160506
  9. CLONIDINE. [Suspect]
     Active Substance: CLONIDINE
     Dosage: 272.05 ?G, \DAY
     Dates: start: 20161110
  10. DILAUDID [Suspect]
     Active Substance: HYDROMORPHONE HYDROCHLORIDE
     Dosage: 0.899 MG, \DAY
     Dates: start: 20161110
  11. CLONIDINE. [Suspect]
     Active Substance: CLONIDINE
     Dosage: 150.14 ?G, \DAY
     Dates: start: 20160506
  12. DILAUDID [Suspect]
     Active Substance: HYDROMORPHONE HYDROCHLORIDE
     Dosage: 1.174 MG, \DAY
     Dates: start: 20160506
  13. BACLOFEN. [Suspect]
     Active Substance: BACLOFEN
     Dosage: 179.88 ?G, \DAY
     Dates: start: 20161110
  14. BUPIVACAINE. [Suspect]
     Active Substance: BUPIVACAINE
     Dosage: 13.491 MG, \DAY
     Route: 037
     Dates: start: 20161110
  15. BUPIVACAINE. [Suspect]
     Active Substance: BUPIVACAINE
     Dosage: 20.404 MG, \DAY
     Route: 037
     Dates: start: 20161110
  16. DILAUDID [Suspect]
     Active Substance: HYDROMORPHONE HYDROCHLORIDE
     Dosage: 1.361 MG, \DAY
     Route: 037
     Dates: start: 20161110

REACTIONS (3)
  - Device failure [Recovered/Resolved]
  - Loss of consciousness [Recovered/Resolved]
  - Medical device site pain [Recovered/Resolved]

NARRATIVE: CASE EVENT DATE: 20161110
